FAERS Safety Report 19396955 (Version 1)
Quarter: 2021Q2

REPORT INFORMATION
  Report Type: Spontaneous
  Country: IE (occurrence: IE)
  Receive Date: 20210610
  Receipt Date: 20210610
  Transmission Date: 20210717
  Serious: Yes (Life-Threatening, Hospitalization, Other)
  Sender: FDA-Public Use
  Company Number: IE-IPCA LABORATORIES LIMITED-AE-2008-004

PATIENT
  Age: 29 Year
  Sex: Female

DRUGS (2)
  1. HYDROXYCHLOROQUINE [Suspect]
     Active Substance: HYDROXYCHLOROQUINE
     Indication: SJOGREN^S SYNDROME
     Dosage: 200 MILLIGRAM, BID
     Route: 065
  2. GABAPENTIN. [Suspect]
     Active Substance: GABAPENTIN
     Indication: POST HERPETIC NEURALGIA
     Dosage: 300,MILLIGRAM,TID
     Route: 048

REACTIONS (13)
  - Conjunctivitis [Recovering/Resolving]
  - Dyspareunia [Recovering/Resolving]
  - Swelling face [Recovering/Resolving]
  - Decreased appetite [Recovering/Resolving]
  - Blister [Recovering/Resolving]
  - Pain of skin [Recovering/Resolving]
  - Tachycardia [Recovering/Resolving]
  - Dysuria [Recovering/Resolving]
  - Lethargy [Recovering/Resolving]
  - Sepsis [Recovering/Resolving]
  - Rash erythematous [Recovering/Resolving]
  - Scab [Recovering/Resolving]
  - Toxic epidermal necrolysis [Recovering/Resolving]
